FAERS Safety Report 7822233-4 (Version None)
Quarter: 2011Q4

REPORT INFORMATION
  Report Type: 
  Country: None (occurrence: None)
  Receive Date: 20111018
  Receipt Date: 20111014
  Transmission Date: 20120403
  Serious: Yes (Hospitalization)
  Sender: FDA-Public Use
  Company Number: US-ELI_LILLY_AND_COMPANY-US201109007761

PATIENT
  Sex: Male
  Weight: 88.889 kg

DRUGS (1)
  1. EFFIENT [Suspect]
     Dosage: UNK
     Dates: start: 20110820

REACTIONS (1)
  - HOSPITALISATION [None]
